FAERS Safety Report 15866476 (Version 2)
Quarter: 2019Q1

REPORT INFORMATION
  Report Type: Report from Study
  Country: PR (occurrence: PR)
  Receive Date: 20190125
  Receipt Date: 20190217
  Transmission Date: 20190417
  Serious: Yes (Other)
  Sender: FDA-Public Use
  Company Number: PR-BRISTOL-MYERS SQUIBB COMPANY-BMS-2019-005849

PATIENT
  Sex: Male
  Weight: 77 kg

DRUGS (1)
  1. APIXABAN [Suspect]
     Active Substance: APIXABAN
     Indication: DEEP VEIN THROMBOSIS
     Dosage: 5 MG, BID
     Route: 048
     Dates: end: 201811

REACTIONS (5)
  - Back pain [Unknown]
  - Pain in extremity [Unknown]
  - Venous thrombosis [Unknown]
  - Peripheral swelling [Unknown]
  - Fall [Unknown]
